FAERS Safety Report 4627659-8 (Version None)
Quarter: 2005Q2

REPORT INFORMATION
  Report Type: 
  Country: None (occurrence: None)
  Receive Date: 20050406
  Receipt Date: 20050324
  Transmission Date: 20051028
  Serious: Yes (Hospitalization, Other)
  Sender: FDA-Public Use
  Company Number: GB-JNJFOC-20050306107

PATIENT
  Sex: Female
  Weight: 55 kg

DRUGS (10)
  1. REMICADE [Suspect]
     Indication: RHEUMATOID ARTHRITIS
     Route: 042
  2. THYROXINE [Concomitant]
  3. FRUSEMIDE [Concomitant]
  4. DICLOFENAC SODIUM [Concomitant]
  5. FOLIC ACID [Concomitant]
  6. QUINAPRIL [Concomitant]
  7. AMITRIPTYLINE HCL [Concomitant]
  8. CO-PROXAMOL [Concomitant]
  9. CO-PROXAMOL [Concomitant]
  10. METHOTREXATE [Concomitant]

REACTIONS (2)
  - AORTIC VALVE REPLACEMENT [None]
  - CONVULSION [None]
